FAERS Safety Report 25005483 (Version 2)
Quarter: 2025Q2

REPORT INFORMATION
  Report Type: Spontaneous
  Country: DE (occurrence: DE)
  Receive Date: 20250224
  Receipt Date: 20250428
  Transmission Date: 20250716
  Serious: Yes (Death, Hospitalization, Other)
  Sender: NOVARTIS
  Company Number: DE-002147023-NVSC2025DE030434

PATIENT
  Age: 5 Month
  Sex: Male

DRUGS (3)
  1. BASILIXIMAB [Suspect]
     Active Substance: BASILIXIMAB
     Indication: Prophylaxis against transplant rejection
     Route: 065
  2. PREDNISOLONE [Suspect]
     Active Substance: PREDNISOLONE
     Indication: Prophylaxis against transplant rejection
     Route: 065
  3. TACROLIMUS [Suspect]
     Active Substance: TACROLIMUS
     Indication: Prophylaxis against transplant rejection
     Route: 065

REACTIONS (9)
  - Multiple organ dysfunction syndrome [Fatal]
  - Cardiovascular insufficiency [Fatal]
  - Hepatic failure [Fatal]
  - Renal failure [Fatal]
  - Haemorrhage [Fatal]
  - Aspergillus infection [Unknown]
  - Abdominal infection [Unknown]
  - Bronchopulmonary aspergillosis [Unknown]
  - Haemothorax [Unknown]
